FAERS Safety Report 16821512 (Version 1)
Quarter: 2019Q3

REPORT INFORMATION
  Report Type: Spontaneous
  Country: JO (occurrence: JO)
  Receive Date: 20190918
  Receipt Date: 20190918
  Transmission Date: 20191005
  Serious: Yes (Death)
  Sender: FDA-Public Use
  Company Number: JO-PFIZER INC-2019395266

PATIENT
  Age: 40 Year
  Sex: Male

DRUGS (1)
  1. INLYTA [Suspect]
     Active Substance: AXITINIB
     Indication: METASTATIC RENAL CELL CARCINOMA
     Dosage: 5 MG, UNK

REACTIONS (6)
  - Cough [Fatal]
  - Dyspnoea [Fatal]
  - Respiratory distress [Fatal]
  - Lung infiltration [Fatal]
  - Interstitial lung disease [Fatal]
  - Organising pneumonia [Fatal]
